FAERS Safety Report 4290725-3 (Version None)
Quarter: 2004Q1

REPORT INFORMATION
  Report Type: 
  Country: None (occurrence: None)
  Receive Date: 20040206
  Receipt Date: 20040206
  Transmission Date: 20041129
  Serious: Yes (Death)
  Sender: FDA-Public Use
  Company Number: None

PATIENT
  Age: 43 Year
  Sex: Female

DRUGS (3)
  1. WARFARIN SODIUM [Suspect]
  2. PAXIL [Concomitant]
  3. LIPITOR [Concomitant]

REACTIONS (4)
  - COMA [None]
  - FALL [None]
  - HAEMORRHAGE [None]
  - RESPIRATORY ARREST [None]
